FAERS Safety Report 4634889-8 (Version None)
Quarter: 2005Q2

REPORT INFORMATION
  Report Type: 
  Country: None (occurrence: None)
  Receive Date: 20050412
  Receipt Date: 20050330
  Transmission Date: 20051028
  Serious: Yes (Congenital Anomaly)
  Sender: FDA-Public Use
  Company Number: 2005051112

PATIENT
  Sex: 0

DRUGS (2)
  1. DOSTINEX [Suspect]
     Indication: AMENORRHOEA
     Dosage: 0.5 MG (0.5 MG, DAILY INTERVAL : EVERY WEEK), ORAL
     Route: 048
     Dates: start: 19990601, end: 19990101
  2. DOSTINEX [Suspect]
     Indication: GALACTORRHOEA
     Dosage: 0.5 MG (0.5 MG, DAILY INTERVAL : EVERY WEEK), ORAL
     Route: 048
     Dates: start: 19990601, end: 19990101

REACTIONS (4)
  - ABORTION INDUCED [None]
  - CHROMOSOME ABNORMALITY [None]
  - DRUG EXPOSURE DURING PREGNANCY [None]
  - PRE-ECLAMPSIA [None]
